FAERS Safety Report 9857446 (Version 2)
Quarter: 2014Q1

REPORT INFORMATION
  Report Type: Report from Study
  Country: CO (occurrence: CO)
  Receive Date: 20140131
  Receipt Date: 20140311
  Transmission Date: 20141002
  Serious: Yes (Other)
  Sender: FDA-Public Use
  Company Number: CO-ROCHE-1341956

PATIENT
  Age: 9 Year
  Sex: Female

DRUGS (5)
  1. XOLAIR [Suspect]
     Indication: ASTHMA
     Route: 058
     Dates: start: 201305
  2. MONTELUKAST [Concomitant]
  3. BETAMETHASONE [Concomitant]
  4. HYDROCHLOROTHIAZIDE [Concomitant]
  5. CETRIZINE [Concomitant]

REACTIONS (1)
  - Varicella [Recovered/Resolved]
